FAERS Safety Report 7624767-4 (Version None)
Quarter: 2011Q3

REPORT INFORMATION
  Report Type: 
  Country: None (occurrence: None)
  Receive Date: 20110720
  Receipt Date: 20101206
  Transmission Date: 20111222
  Serious: Yes (Death, Disabling, Other)
  Sender: FDA-Public Use
  Company Number: US-BAYER-201010258NA

PATIENT
  Age: 55 Year
  Sex: Male
  Weight: 50 kg

DRUGS (26)
  1. MAGNEVIST [Suspect]
     Indication: NUCLEAR MAGNETIC RESONANCE IMAGING
     Dates: start: 20061102, end: 20061102
  2. ANTICOAGULANT CITRATE DEXTROSE [Concomitant]
     Dates: start: 19980101, end: 20060501
  3. NEPHROVITE [VIT C,VIT H,B5,B12,B9,B3,B6,B2,B1 HCL] [Concomitant]
  4. RENAGEL [Concomitant]
  5. OMNISCAN [Suspect]
     Indication: NUCLEAR MAGNETIC RESONANCE IMAGING
  6. METOCLOPRAMIDE [Concomitant]
  7. MIRTAZAPINE [Concomitant]
     Dosage: 30 MG (DAILY DOSE), ,
  8. OPTIMARK [Suspect]
     Indication: NUCLEAR MAGNETIC RESONANCE IMAGING
  9. MULTIHANCE [Suspect]
     Indication: NUCLEAR MAGNETIC RESONANCE IMAGING
  10. PROHANCE [Suspect]
     Indication: NUCLEAR MAGNETIC RESONANCE IMAGING
  11. IMMUNOSUPPRESSIVE AGENTS [Concomitant]
     Dates: start: 19980101, end: 20090301
  12. CLONIDINE [Concomitant]
  13. LEVOTHYROXINE SODIUM [Concomitant]
  14. SIMVASTATIN [Concomitant]
  15. CONTRAST MEDIA [Suspect]
     Indication: NUCLEAR MAGNETIC RESONANCE IMAGING
     Dates: start: 20061102, end: 20061102
  16. SEVELAMER [Concomitant]
     Dosage: 0.1 MG (DAILY DOSE), ,
  17. CARTIA XT [Concomitant]
  18. PREDNISONE [Concomitant]
     Dates: start: 19980101, end: 20090301
  19. CLONAZEPAM [Concomitant]
  20. ATENOLOL [Concomitant]
  21. EPOGEN [Concomitant]
  22. AMBIEN [Concomitant]
  23. PROTONIX [Concomitant]
  24. PROCARDIA [Concomitant]
  25. NIFEDICAL [Concomitant]
  26. PHOSLO [Concomitant]

REACTIONS (10)
  - PAIN [None]
  - PAIN IN EXTREMITY [None]
  - SKIN TIGHTNESS [None]
  - JOINT RANGE OF MOTION DECREASED [None]
  - MOBILITY DECREASED [None]
  - HAND DEFORMITY [None]
  - NEPHROGENIC SYSTEMIC FIBROSIS [None]
  - SKIN FISSURES [None]
  - SKIN HYPERTROPHY [None]
  - SKIN INDURATION [None]
